FAERS Safety Report 13523366 (Version 2)
Quarter: 2017Q3

REPORT INFORMATION
  Report Type: Spontaneous
  Country: US (occurrence: US)
  Receive Date: 20170508
  Receipt Date: 20170810
  Transmission Date: 20171127
  Serious: No
  Sender: FDA-Public Use
  Company Number: US-VIFOR (INTERNATIONAL) INC.-VIT-2017-02900

PATIENT
  Age: 72 Year
  Sex: Male
  Weight: 127.12 kg

DRUGS (19)
  1. AZELASTINE [Concomitant]
     Active Substance: AZELASTINE
  2. PRIMIDONE. [Concomitant]
     Active Substance: PRIMIDONE
  3. LANTUS [Concomitant]
     Active Substance: INSULIN GLARGINE
  4. CELECOXIB. [Concomitant]
     Active Substance: CELECOXIB
  5. ISOSORBIDE. [Concomitant]
     Active Substance: ISOSORBIDE
  6. ESOMEPRAZOLE MAGNESIUM. [Concomitant]
     Active Substance: ESOMEPRAZOLE MAGNESIUM
  7. CANDESARTAN. [Concomitant]
     Active Substance: CANDESARTAN
  8. METOPROLOL. [Concomitant]
     Active Substance: METOPROLOL
  9. INCRUSE ELPT INH [Concomitant]
  10. VELTASSA [Suspect]
     Active Substance: PATIROMER
     Indication: HYPERKALAEMIA
     Route: 048
     Dates: start: 20170214, end: 20170228
  11. FUROSEMIDE. [Concomitant]
     Active Substance: FUROSEMIDE
  12. ALLOPURINOL. [Concomitant]
     Active Substance: ALLOPURINOL
  13. FENOFIBRIC ACID. [Concomitant]
     Active Substance: FENOFIBRIC ACID
  14. TESTOSTERONE CIPIONATE [Concomitant]
     Active Substance: TESTOSTERONE
  15. SIMVASTATIN. [Concomitant]
     Active Substance: SIMVASTATIN
  16. AMLODIPINE [Concomitant]
     Active Substance: AMLODIPINE BESYLATE
  17. BREO ELLIPTA INH [Concomitant]
  18. ESCITALOPRAM [Concomitant]
     Active Substance: ESCITALOPRAM OXALATE
  19. IPRATROPIUM [Concomitant]
     Active Substance: IPRATROPIUM

REACTIONS (5)
  - Nausea [Recovered/Resolved]
  - Tremor [Recovered/Resolved]
  - Diarrhoea [Recovered/Resolved]
  - Hypersensitivity [Recovered/Resolved]
  - Decreased appetite [Recovered/Resolved]

NARRATIVE: CASE EVENT DATE: 20170216
